FAERS Safety Report 18499109 (Version 1)
Quarter: 2020Q4

REPORT INFORMATION
  Report Type: Spontaneous
  Country: LU (occurrence: LU)
  Receive Date: 20201113
  Receipt Date: 20201113
  Transmission Date: 20210114
  Serious: Yes (Other)
  Sender: FDA-Public Use
  Company Number: LU-OCTA-GAM22820LU

PATIENT
  Age: 3 Year
  Sex: Female
  Weight: 16 kg

DRUGS (1)
  1. OCTAGAM IMMUNE GLOBULIN (HUMAN) [Suspect]
     Active Substance: HUMAN IMMUNOGLOBULIN G
     Indication: AUTISM SPECTRUM DISORDER
     Dosage: 3 DOSES FROM THE SAME BATCH ADMINISTERED (1G/KG)
     Route: 042
     Dates: start: 20200831, end: 20200901

REACTIONS (9)
  - Off label use [Unknown]
  - Head banging [Recovered/Resolved]
  - Eating disorder [Recovered/Resolved]
  - Sleep disorder [Recovered/Resolved]
  - Crying [Recovered/Resolved]
  - Vomiting [Recovered/Resolved]
  - Pyrexia [Recovered/Resolved]
  - Aggression [Recovered/Resolved]
  - Headache [Recovered/Resolved]

NARRATIVE: CASE EVENT DATE: 20200831
